FAERS Safety Report 20473225 (Version 2)
Quarter: 2022Q2

REPORT INFORMATION
  Report Type: Spontaneous
  Country: IN (occurrence: IN)
  Receive Date: 20220215
  Receipt Date: 20220516
  Transmission Date: 20220721
  Serious: Yes (Life-Threatening, Hospitalization, Other)
  Sender: FDA-Public Use
  Company Number: None

PATIENT

DRUGS (1)
  1. ALBUTEROL [Suspect]
     Active Substance: ALBUTEROL
     Dosage: 6 DOSAGE FORM, SALBUTAMOL RESPULES (2.5 ML)
     Route: 048

REACTIONS (8)
  - Accidental poisoning [Recovered/Resolved]
  - Neonatal toxicity [Recovered/Resolved]
  - Irritability [Recovered/Resolved]
  - Poor feeding infant [Recovered/Resolved]
  - Accidental exposure to product [Recovered/Resolved]
  - Neonatal tachycardia [Recovered/Resolved]
  - Electrocardiogram QT prolonged [Recovered/Resolved]
  - Exposure via breast milk [Unknown]
